FAERS Safety Report 9374632 (Version 2)
Quarter: 2013Q3

REPORT INFORMATION
  Report Type: Spontaneous
  Country: CY (occurrence: CY)
  Receive Date: 20130628
  Receipt Date: 20130703
  Transmission Date: 20140515
  Serious: Yes (Other)
  Sender: FDA-Public Use
  Company Number: CY-PFIZER INC-2013191980

PATIENT
  Sex: 0

DRUGS (4)
  1. TRIATEC [Suspect]
     Dosage: UNK
     Dates: start: 20130402, end: 20130409
  2. ATACAND [Concomitant]
     Dosage: UNK
  3. AMLODIPINE [Concomitant]
     Dosage: UNK
  4. CONCOR [Concomitant]
     Dosage: UNK

REACTIONS (2)
  - Penile oedema [Recovered/Resolved]
  - Angioedema [Recovered/Resolved]
